FAERS Safety Report 8430693 (Version 2)
Quarter: 2013Q4

REPORT INFORMATION
  Report Type: Report from Study
  Country: NO (occurrence: NO)
  Receive Date: 20120228
  Receipt Date: 20131118
  Transmission Date: 20140711
  Serious: Yes (Other)
  Sender: FDA-Public Use
  Company Number: NO-ROCHE-1042517

PATIENT
  Sex: 0

DRUGS (2)
  1. ALTEPLASE [Suspect]
     Indication: DEEP VEIN THROMBOSIS
     Dosage: 20 MG IN 500 ML 0.9% NACL INFUSED AT A RATE OF 0.01 MG/KG/H WITH A MAXIMUM DOSE OF 20 MG/24 HR
     Route: 042
  2. UNFRACTIONATED HEPARIN [Concomitant]
     Indication: DEEP VEIN THROMBOSIS
     Dosage: THE DOSE WAS ADJUSTED TO KEEP ACTIVATED PARTIAL THROMBOPLASTIN TIME AT 1.2-1.7 TIMES HIGHER THAN THE
     Route: 042

REACTIONS (1)
  - Puncture site infection [Unknown]
